FAERS Safety Report 18301043 (Version 1)
Quarter: 2020Q3

REPORT INFORMATION
  Report Type: Spontaneous
  Country: US (occurrence: US)
  Receive Date: 20200923
  Receipt Date: 20200923
  Transmission Date: 20201103
  Serious: Yes (Hospitalization)
  Sender: FDA-Public Use
  Company Number: US-STRIDES ARCOLAB LIMITED-2020SP011192

PATIENT
  Age: 18 Year
  Sex: Female
  Weight: 42.18 kg

DRUGS (3)
  1. CETIRIZINE [Suspect]
     Active Substance: CETIRIZINE HYDROCHLORIDE
     Dosage: 10 TO 16 TABLETS OF 10 MG EACH WITHIN THE NEXT HOUR
     Route: 048
  2. CETIRIZINE [Suspect]
     Active Substance: CETIRIZINE HYDROCHLORIDE
     Indication: SEASONAL ALLERGY
     Dosage: 2 TABLETS OF 10 MG (20 MG)
     Route: 048
  3. CETIRIZINE [Suspect]
     Active Substance: CETIRIZINE HYDROCHLORIDE
     Indication: ABDOMINAL PAIN
     Dosage: UNK
     Route: 065

REACTIONS (7)
  - Methaemoglobinaemia [Recovered/Resolved]
  - Nausea [Unknown]
  - Tremor [Unknown]
  - Cyanosis [Unknown]
  - Anxiety [Unknown]
  - Abdominal pain [Unknown]
  - Off label use [Unknown]
